FAERS Safety Report 4307299-0 (Version None)
Quarter: 2004Q1

REPORT INFORMATION
  Report Type: 
  Country: None (occurrence: None)
  Receive Date: 20040226
  Receipt Date: 20040213
  Transmission Date: 20041129
  Serious: Yes (Hospitalization)
  Sender: FDA-Public Use
  Company Number: 2004200351US

PATIENT
  Sex: Female

DRUGS (4)
  1. CELEBREX [Suspect]
     Dosage: QD
     Dates: start: 20040101
  2. SYNTHROID [Concomitant]
  3. ARICEPT (DONEPEZIL HYDROCHLORDIDE) [Concomitant]
  4. ASPIRIN [Concomitant]

REACTIONS (2)
  - ASTHENIA [None]
  - STEVENS-JOHNSON SYNDROME [None]
